FAERS Safety Report 11820546 (Version 1)
Quarter: 2015Q4

REPORT INFORMATION
  Report Type: Spontaneous
  Country: US (occurrence: US)
  Receive Date: 20151210
  Receipt Date: 20151210
  Transmission Date: 20160305
  Serious: No
  Sender: FDA-Public Use
  Company Number: US-JNJFOC-20150211326

PATIENT
  Age: 66 Year
  Sex: Male

DRUGS (4)
  1. AMBIEN [Concomitant]
     Active Substance: ZOLPIDEM TARTRATE
     Indication: SLEEP DISORDER
     Dates: start: 2003
  2. IVIGLOB EX [Concomitant]
     Active Substance: HUMAN IMMUNOGLOBULIN G
     Dosage: AS NEEDED
     Dates: start: 201407
  3. IMBRUVICA [Suspect]
     Active Substance: IBRUTINIB
     Indication: CHRONIC LYMPHOCYTIC LEUKAEMIA
     Route: 048
     Dates: start: 20140701
  4. LIPITOR [Concomitant]
     Active Substance: ATORVASTATIN CALCIUM
     Indication: BLOOD CHOLESTEROL ABNORMAL
     Dates: start: 1990

REACTIONS (9)
  - Glossodynia [Not Recovered/Not Resolved]
  - Bronchitis [Recovering/Resolving]
  - Lung abscess [Not Recovered/Not Resolved]
  - Dry mouth [Not Recovered/Not Resolved]
  - Oropharyngeal pain [Unknown]
  - Pneumonia pneumococcal [Not Recovered/Not Resolved]
  - Tongue discolouration [Unknown]
  - Myalgia [Recovering/Resolving]
  - Fungal test positive [Recovered/Resolved]

NARRATIVE: CASE EVENT DATE: 201408
